FAERS Safety Report 16531998 (Version 1)
Quarter: 2019Q3

REPORT INFORMATION
  Report Type: Spontaneous
  Country: US (occurrence: US)
  Receive Date: 20190703
  Receipt Date: 20190703
  Transmission Date: 20191004
  Serious: Yes (Hospitalization)
  Sender: FDA-Public Use
  Company Number: None

PATIENT
  Age: 69 Year
  Sex: Female

DRUGS (2)
  1. XELJANZ [Suspect]
     Active Substance: TOFACITINIB CITRATE
     Indication: RHEUMATOID ARTHRITIS
     Route: 048
     Dates: start: 20180130
  2. METHOTREXATE. [Suspect]
     Active Substance: METHOTREXATE

REACTIONS (3)
  - Product dose omission [None]
  - Myocardial infarction [None]
  - Fatigue [None]

NARRATIVE: CASE EVENT DATE: 20190615
